FAERS Safety Report 22125964 (Version 2)
Quarter: 2023Q1

REPORT INFORMATION
  Report Type: Spontaneous
  Country: SI (occurrence: SI)
  Receive Date: 20230322
  Receipt Date: 20230323
  Transmission Date: 20230418
  Serious: Yes (Life-Threatening)
  Sender: FDA-Public Use
  Company Number: SI-KOREA IPSEN Pharma-2023-07112

PATIENT

DRUGS (2)
  1. DYSPORT [Suspect]
     Active Substance: ABOBOTULINUMTOXINA
     Indication: Skin wrinkling
     Route: 065
  2. DYSPORT [Suspect]
     Active Substance: ABOBOTULINUMTOXINA
     Indication: Hyperhidrosis

REACTIONS (9)
  - Botulism [Unknown]
  - Facial asymmetry [Unknown]
  - Eyelid ptosis [Unknown]
  - Ectropion [Unknown]
  - Dysphagia [Unknown]
  - Dry mouth [Unknown]
  - Dysmorphism [Unknown]
  - Asthenia [Unknown]
  - Vision blurred [Unknown]
